FAERS Safety Report 5491923-3 (Version None)
Quarter: 2007Q4

REPORT INFORMATION
  Report Type: 
  Country: None (occurrence: None)
  Receive Date: 20071022
  Receipt Date: 20071017
  Transmission Date: 20080405
  Serious: Yes (Other)
  Sender: FDA-Public Use
  Company Number: B0492015A

PATIENT
  Age: 42 Year
  Sex: Male

DRUGS (1)
  1. NIQUITIN CQ CLEAR 14MG [Suspect]
     Route: 062

REACTIONS (4)
  - AGGRESSION [None]
  - AGITATION [None]
  - PERSONALITY CHANGE [None]
  - PHARMACEUTICAL PRODUCT COMPLAINT [None]
